FAERS Safety Report 15488701 (Version 1)
Quarter: 2018Q4

REPORT INFORMATION
  Report Type: Spontaneous
  Country: US (occurrence: US)
  Receive Date: 20181003
  Receipt Date: 20181003
  Transmission Date: 20190205
  Serious: Yes (Life-Threatening, Disabling)
  Sender: FDA-Public Use
  Company Number: None

PATIENT
  Age: 59 Year
  Sex: Female
  Weight: 104.4 kg

DRUGS (9)
  1. FLUTICASONE PROP SPRAY [Concomitant]
  2. VALSARTAN-HCTZ 320-25 MG TAB [Suspect]
     Active Substance: HYDROCHLOROTHIAZIDE\VALSARTAN
     Indication: BLOOD PRESSURE MEASUREMENT
     Dosage: ?          QUANTITY:1 TABLET(S);?
     Route: 048
     Dates: start: 20140317, end: 20180720
  3. CYCLOBENZAPRINE. [Concomitant]
     Active Substance: CYCLOBENZAPRINE
  4. OMEPRAZOLE DR [Concomitant]
     Active Substance: OMEPRAZOLE
  5. LYRICA [Concomitant]
     Active Substance: PREGABALIN
  6. PAROXETINE. [Concomitant]
     Active Substance: PAROXETINE
  7. HUMULIN R [Concomitant]
     Active Substance: INSULIN HUMAN
  8. PROAIR HFA [Concomitant]
     Active Substance: ALBUTEROL SULFATE
  9. IBUPROFEN. [Concomitant]
     Active Substance: IBUPROFEN

REACTIONS (15)
  - Skin discolouration [None]
  - Feeling cold [None]
  - Skin exfoliation [None]
  - Pain [None]
  - Blood magnesium decreased [None]
  - Blood glucose decreased [None]
  - Recalled product administered [None]
  - Bone pain [None]
  - Mass [None]
  - Breast cancer [None]
  - Decreased appetite [None]
  - Amnesia [None]
  - Alopecia [None]
  - Chest pain [None]
  - Hypoaesthesia [None]

NARRATIVE: CASE EVENT DATE: 20161117
